FAERS Safety Report 4850739-9 (Version None)
Quarter: 2005Q4

REPORT INFORMATION
  Report Type: 
  Country: None (occurrence: None)
  Receive Date: 20051208
  Receipt Date: 20051208
  Transmission Date: 20060501
  Serious: Yes (Hospitalization)
  Sender: FDA-Public Use
  Company Number: None

PATIENT
  Age: 59 Year
  Sex: Female

DRUGS (2)
  1. LISINOPRIL [Suspect]
  2. CIPROFLOXACIN [Suspect]

REACTIONS (1)
  - ANGIONEUROTIC OEDEMA [None]
